FAERS Safety Report 12627381 (Version 1)
Quarter: 2016Q3

REPORT INFORMATION
  Report Type: Report from Study
  Country: US (occurrence: US)
  Receive Date: 20160805
  Receipt Date: 20160805
  Transmission Date: 20161109
  Serious: No
  Sender: FDA-Public Use
  Company Number: US-AMGEN-USASL2016094676

PATIENT
  Age: 49 Year
  Sex: Male

DRUGS (3)
  1. NPLATE [Suspect]
     Active Substance: ROMIPLOSTIM
     Dosage: 800 MUG, UNK
     Route: 065
     Dates: start: 201607
  2. NPLATE [Suspect]
     Active Substance: ROMIPLOSTIM
     Indication: IMMUNE THROMBOCYTOPENIC PURPURA
     Dosage: UNK UNK, QWK
     Route: 065
     Dates: start: 201512
  3. VINCRISTINE [Suspect]
     Active Substance: VINCRISTINE
     Indication: PRODUCT USED FOR UNKNOWN INDICATION
     Dosage: UNK
     Route: 065

REACTIONS (12)
  - Hypotension [Unknown]
  - Therapeutic response unexpected [Unknown]
  - Urticaria [Unknown]
  - Epistaxis [Unknown]
  - Pain in extremity [Not Recovered/Not Resolved]
  - Purpura [Unknown]
  - Contusion [Recovered/Resolved]
  - Headache [Not Recovered/Not Resolved]
  - Fatigue [Unknown]
  - Insomnia [Unknown]
  - Petechiae [Unknown]
  - Stomatitis [Unknown]

NARRATIVE: CASE EVENT DATE: 201606
